FAERS Safety Report 8092335-9 (Version None)
Quarter: 2012Q1

REPORT INFORMATION
  Report Type: 
  Country: None (occurrence: None)
  Receive Date: 20120128
  Receipt Date: 20110824
  Transmission Date: 20120608
  Serious: No
  Sender: FDA-Public Use
  Company Number: US-ABBOTT-11P-163-0849042-00

PATIENT
  Sex: Male
  Weight: 158.9 kg

DRUGS (12)
  1. DIOVAN [Concomitant]
     Indication: HYPERTENSION
  2. PERCOCET [Concomitant]
     Indication: INSOMNIA
  3. ACETAMINOPHEN [Concomitant]
     Indication: PAIN
  4. ALLOPURINOL [Concomitant]
     Indication: GOUT
  5. PERCOCET [Concomitant]
     Indication: PAIN
  6. NASAL SPRAY [Concomitant]
     Indication: NASAL CONGESTION
  7. HUMIRA [Suspect]
     Indication: PSORIATIC ARTHROPATHY
     Dates: start: 20110801
  8. ACETAMINOPHEN [Concomitant]
  9. NASAL SPRAY [Concomitant]
     Indication: UPPER-AIRWAY COUGH SYNDROME
  10. HYDROCHLOROTHIAZIDE [Concomitant]
     Indication: HYPERTENSION
  11. VITAMIN D [Concomitant]
     Indication: VITAMIN SUPPLEMENTATION
  12. COLCRYS [Concomitant]
     Indication: GOUT

REACTIONS (2)
  - INJECTION SITE PAIN [None]
  - FATIGUE [None]
